FAERS Safety Report 7199216-3 (Version None)
Quarter: 2010Q4

REPORT INFORMATION
  Report Type: 
  Country: None (occurrence: None)
  Receive Date: 20101215
  Receipt Date: 20101202
  Transmission Date: 20110411
  Serious: Yes (Other)
  Sender: FDA-Public Use
  Company Number: FKO201000544

PATIENT
  Age: 48 Year
  Sex: Male
  Weight: 81.7 kg

DRUGS (18)
  1. OXALIPLATIN [Suspect]
     Indication: COLORECTAL CANCER
     Dosage: SEE IMAGE
     Route: 042
     Dates: start: 20090807, end: 20090807
  2. OXALIPLATIN [Suspect]
     Indication: COLORECTAL CANCER
     Dosage: SEE IMAGE
     Route: 042
     Dates: start: 20090821, end: 20090821
  3. OXALIPLATIN [Suspect]
     Indication: COLORECTAL CANCER
     Dosage: SEE IMAGE
     Route: 042
     Dates: start: 20090904, end: 20090904
  4. FLUOROURACIL [Suspect]
     Indication: COLORECTAL CANCER
     Dosage: INTRAVENOUS BOLUS
     Route: 040
     Dates: start: 20090807, end: 20090807
  5. FLUOROURACIL [Suspect]
     Indication: COLORECTAL CANCER
     Dosage: INTRAVENOUS BOLUS
     Route: 040
     Dates: start: 20090821, end: 20090821
  6. FLUOROURACIL [Suspect]
     Indication: COLORECTAL CANCER
     Dosage: INTRAVENOUS BOLUS
     Route: 040
     Dates: start: 20090904, end: 20090904
  7. FLUOROURACIL [Suspect]
     Dosage: INTRAVENOUS DRIP
     Route: 041
     Dates: start: 20090807, end: 20090809
  8. FLUOROURACIL [Suspect]
     Dosage: INTRAVENOUS DRIP
     Route: 041
     Dates: start: 20090821, end: 20090821
  9. FLUOROURACIL [Suspect]
     Dosage: INTRAVENOUS DRIP
     Route: 041
     Dates: start: 20090904, end: 20090906
  10. CARBAMAZEPINE [Concomitant]
  11. LISINOPRIL [Concomitant]
  12. LORAZEPAM [Concomitant]
  13. LORATADINE (LORATADINE) (LORATADINE) [Concomitant]
  14. LOMOTIL (LOMOTIL) (LOMOTIL) [Concomitant]
  15. ZOLPIDEM (ZOLPIDEM) (ZOLPIDEM) [Concomitant]
  16. CYANOCOBALAMIN (CYANOCOBALAMIN) (CYANOCOBALAMIN) [Concomitant]
  17. PYRIDOXINE (PYRIDOXINE) (PYRIDOXINE) [Concomitant]
  18. DARBEPOETIN ALFA (DARBEPOETIN ALFA) (DARBEPOETIN ALFA) [Concomitant]

REACTIONS (9)
  - BLOOD PHOSPHORUS DECREASED [None]
  - DIARRHOEA [None]
  - FATIGUE [None]
  - HAEMATOCRIT DECREASED [None]
  - HAEMOGLOBIN DECREASED [None]
  - NEUTROPENIA [None]
  - PLATELET COUNT DECREASED [None]
  - WHITE BLOOD CELL COUNT DECREASED [None]
  - WHITE BLOOD CELL COUNT INCREASED [None]
